FAERS Safety Report 25535696 (Version 1)
Quarter: 2025Q3

REPORT INFORMATION
  Report Type: Report from Study
  Country: US (occurrence: US)
  Receive Date: 20250709
  Receipt Date: 20250709
  Transmission Date: 20251021
  Serious: Yes (Other)
  Sender: ABBVIE
  Company Number: US-ABBVIE-6352190

PATIENT
  Age: 67 Year
  Sex: Female

DRUGS (5)
  1. HUMIRA [Suspect]
     Active Substance: ADALIMUMAB
     Indication: Product used for unknown indication
     Route: 058
  2. SKYRIZI [Suspect]
     Active Substance: RISANKIZUMAB-RZAA
     Indication: Product used for unknown indication
     Route: 058
  3. ENTYVIO [Concomitant]
     Active Substance: VEDOLIZUMAB
     Indication: Product used for unknown indication
  4. RINVOQ [Suspect]
     Active Substance: UPADACITINIB
     Indication: Product used for unknown indication
     Route: 048
     Dates: start: 20250201
  5. RINVOQ [Suspect]
     Active Substance: UPADACITINIB
     Indication: Product used for unknown indication
     Dosage: START DATE 2025
     Route: 048

REACTIONS (10)
  - Intestinal resection [Unknown]
  - Diarrhoea [Unknown]
  - Infection [Unknown]
  - Anaemia [Unknown]
  - Arthropathy [Unknown]
  - Inflammation [Unknown]
  - Muscle spasms [Unknown]
  - Pain [Unknown]
  - Obstruction [Not Recovered/Not Resolved]
  - Lactose intolerance [Unknown]

NARRATIVE: CASE EVENT DATE: 20250101
